FAERS Safety Report 5354094-X (Version None)
Quarter: 2007Q2

REPORT INFORMATION
  Report Type: 
  Country: None (occurrence: None)
  Receive Date: 20070612
  Receipt Date: 20070608
  Transmission Date: 20071010
  Serious: Yes (Life-Threatening)
  Sender: FDA-Public Use
  Company Number: B0474486A

PATIENT
  Age: 30 Year
  Sex: Female

DRUGS (5)
  1. AUGMENTIN '125' [Suspect]
     Dosage: 2G SINGLE DOSE
     Route: 042
     Dates: start: 20070411, end: 20070411
  2. SYNTOCINON [Suspect]
     Dosage: 30IU PER DAY
     Route: 042
     Dates: start: 20070411, end: 20070411
  3. XYLOCAINE [Suspect]
     Route: 008
     Dates: start: 20070411, end: 20070411
  4. SUFENTA [Suspect]
     Route: 008
     Dates: start: 20070411, end: 20070411
  5. ROPIVACAINE HYDROCHLORIDE [Suspect]
     Dosage: 29MG PER DAY
     Route: 008
     Dates: start: 20070411, end: 20070411

REACTIONS (6)
  - ANAPHYLACTIC SHOCK [None]
  - ERYTHEMA [None]
  - EYELID OEDEMA [None]
  - HYPOTENSION [None]
  - PAINFUL RESPIRATION [None]
  - URTICARIA [None]
